FAERS Safety Report 5423644-7 (Version None)
Quarter: 2007Q3

REPORT INFORMATION
  Report Type: 
  Country: None (occurrence: None)
  Receive Date: 20070823
  Receipt Date: 20070814
  Transmission Date: 20080115
  Serious: Yes (Hospitalization)
  Sender: FDA-Public Use
  Company Number: A0643588A

PATIENT
  Age: 67 Year
  Sex: Female
  Weight: 55 kg

DRUGS (5)
  1. LAPATINIB [Suspect]
     Indication: BREAST CANCER
     Dosage: 1500MG PER DAY
     Route: 048
     Dates: start: 20070127
  2. AMLODIPINE [Concomitant]
     Indication: HYPERTENSION
     Dosage: 5MG PER DAY
     Route: 048
     Dates: start: 20050101
  3. ATENOLOL [Concomitant]
  4. CEFIXIME [Concomitant]
     Dosage: 200MG TWICE PER DAY
     Route: 048
     Dates: start: 20070302, end: 20070308
  5. DICLOFENAC [Concomitant]
     Dates: start: 20070302, end: 20070308

REACTIONS (2)
  - ABDOMINAL PAIN [None]
  - GASTROENTERITIS [None]
